FAERS Safety Report 6275426-4 (Version None)
Quarter: 2009Q3

REPORT INFORMATION
  Report Type: 
  Country: None (occurrence: None)
  Receive Date: 20090721
  Receipt Date: 20090713
  Transmission Date: 20100115
  Serious: Yes (Hospitalization, Other)
  Sender: FDA-Public Use
  Company Number: US-AMGEN-QUU355740

PATIENT
  Sex: Male

DRUGS (2)
  1. ENBREL [Suspect]
     Indication: RHEUMATOID ARTHRITIS
     Route: 058
     Dates: start: 20090630
  2. METHOTREXATE [Concomitant]

REACTIONS (4)
  - BIPOLAR DISORDER [None]
  - HEMIPLEGIA [None]
  - INJECTION SITE ERYTHEMA [None]
  - SPINAL CORD OEDEMA [None]
